FAERS Safety Report 5272497-9 (Version None)
Quarter: 2007Q1

REPORT INFORMATION
  Report Type: 
  Country: None (occurrence: None)
  Receive Date: 20070322
  Receipt Date: 20060330
  Transmission Date: 20070707
  Serious: No
  Sender: FDA-Public Use
  Company Number: US-BRISTOL-MYERS SQUIBB COMPANY-13331525

PATIENT
  Age: 46 Year
  Sex: Female
  Weight: 57 kg

DRUGS (2)
  1. KENALOG [Suspect]
     Indication: INFLAMMATION
     Dates: start: 20050513
  2. VITAMINS + MINERALS [Concomitant]

REACTIONS (4)
  - EYE DISORDER [None]
  - FACE OEDEMA [None]
  - HYPOAESTHESIA [None]
  - LIPOATROPHY [None]
